FAERS Safety Report 9855188 (Version 1)
Quarter: 2014Q1

REPORT INFORMATION
  Report Type: Spontaneous
  Country: US (occurrence: US)
  Receive Date: 20140130
  Receipt Date: 20140130
  Transmission Date: 20141002
  Serious: Yes (Death, Other)
  Sender: FDA-Public Use
  Company Number: US-PAR PHARMACEUTICAL, INC-2014SCPR008618

PATIENT
  Age: 24 Year
  Sex: Male

DRUGS (2)
  1. MORPHINE SULFATE [Suspect]
     Indication: PRODUCT USED FOR UNKNOWN INDICATION
     Dosage: UNK, UNKNOWN
     Route: 048
  2. AMPHETAMINE [Suspect]
     Indication: PRODUCT USED FOR UNKNOWN INDICATION
     Dosage: UNK, UNKNOWN
     Route: 048

REACTIONS (13)
  - Death [Fatal]
  - Brain oedema [Fatal]
  - Brain herniation [Fatal]
  - Disseminated intravascular coagulation [Fatal]
  - Papillary muscle infarction [Fatal]
  - Renal failure acute [Fatal]
  - Ischaemic hepatitis [Fatal]
  - Pulmonary oedema [Fatal]
  - Pleural effusion [Fatal]
  - Cyanosis [Fatal]
  - Hypoglycaemia [Fatal]
  - Hyperhidrosis [Fatal]
  - Drug abuse [Fatal]
